FAERS Safety Report 21717036 (Version 1)
Quarter: 2022Q4

REPORT INFORMATION
  Report Type: Spontaneous
  Country: CN (occurrence: CN)
  Receive Date: 20221212
  Receipt Date: 20221212
  Transmission Date: 20230113
  Serious: Yes (Other)
  Sender: FDA-Public Use
  Company Number: CN-PFIZER INC-PV202200119001

PATIENT
  Age: 62 Year
  Sex: Male
  Weight: 70 kg

DRUGS (3)
  1. ZYVOX [Suspect]
     Active Substance: LINEZOLID
     Indication: Infection
     Dosage: 600 MG, 2X/DAY
     Route: 048
     Dates: start: 20221025, end: 20221110
  2. ZHENG CHANG SHENG [Concomitant]
     Indication: Diarrhoea
     Dosage: 500 MG, 3X/DAY
     Route: 048
     Dates: start: 20221103, end: 20221113
  3. BERBERINE [Concomitant]
     Active Substance: BERBERINE
     Indication: Infection
     Dosage: 0.1 G, 3X/DAY
     Route: 048
     Dates: start: 20221017, end: 20221106

REACTIONS (4)
  - Platelet count decreased [Recovering/Resolving]
  - Nausea [Recovered/Resolved]
  - Vomiting [Recovered/Resolved]
  - Decreased appetite [Recovered/Resolved]

NARRATIVE: CASE EVENT DATE: 20221103
